FAERS Safety Report 7251968-X (Version None)
Quarter: 2011Q1

REPORT INFORMATION
  Report Type: 
  Country: None (occurrence: None)
  Receive Date: 20110128
  Receipt Date: 20100322
  Transmission Date: 20110831
  Serious: Yes (Other)
  Sender: FDA-Public Use
  Company Number: US-ABBOTT-10P-163-0618788-00

PATIENT
  Sex: Female
  Weight: 90.346 kg

DRUGS (3)
  1. HUMIRA [Suspect]
     Indication: CROHN'S DISEASE
     Dosage: EVERY WEEK
     Dates: start: 20090201, end: 20090320
  2. HUMIRA [Suspect]
  3. HUMIRA [Suspect]

REACTIONS (1)
  - CARDIAC FAILURE CONGESTIVE [None]
